FAERS Safety Report 5001323-8 (Version None)
Quarter: 2006Q2

REPORT INFORMATION
  Report Type: 
  Country: None (occurrence: None)
  Receive Date: 20060512
  Receipt Date: 20060214
  Transmission Date: 20061013
  Serious: Yes (Hospitalization)
  Sender: FDA-Public Use
  Company Number: US-MERCK-0602USA04287

PATIENT
  Age: 56 Year
  Sex: Male
  Weight: 80 kg

DRUGS (14)
  1. LOPRESSOR [Concomitant]
     Indication: CHEST PAIN
     Route: 065
     Dates: start: 20020101
  2. TOPROL-XL [Concomitant]
     Indication: CHEST PAIN
     Route: 065
     Dates: start: 20020101
  3. VIOXX [Suspect]
     Indication: DISLOCATION OF VERTEBRA
     Route: 048
     Dates: start: 20020108, end: 20020901
  4. VIOXX [Suspect]
     Indication: BACK PAIN
     Route: 048
     Dates: start: 20020108, end: 20020901
  5. MOTRIN [Concomitant]
     Indication: BACK PAIN
     Route: 065
     Dates: start: 20000101, end: 20020101
  6. DIUREX (HYDROCHLOROTHIAZIDE) [Concomitant]
     Indication: HYPERTENSION
     Route: 065
     Dates: start: 20010101
  7. NITROGLYCERIN [Concomitant]
     Indication: CARDIAC DISORDER
     Route: 065
     Dates: start: 20020101
  8. NITROGLYCERIN [Concomitant]
     Indication: CHEST PAIN
     Route: 065
     Dates: start: 20020101
  9. ENOXAPARIN SODIUM [Concomitant]
     Indication: MYOCARDIAL INFARCTION
     Route: 065
     Dates: start: 20020101, end: 20020101
  10. ASPIRIN [Concomitant]
     Indication: ISCHAEMIC HEART DISEASE PROPHYLAXIS
     Route: 065
     Dates: start: 20020101
  11. ASPIRIN [Concomitant]
     Route: 065
     Dates: start: 20020101
  12. PLAVIX [Concomitant]
     Indication: CARDIAC DISORDER
     Route: 065
     Dates: start: 20020101
  13. LIPITOR [Concomitant]
     Indication: BLOOD CHOLESTEROL
     Route: 065
     Dates: start: 19990101
  14. ZOCOR [Concomitant]
     Indication: BLOOD CHOLESTEROL
     Route: 065
     Dates: start: 20020101, end: 20040101

REACTIONS (11)
  - ANGINA PECTORIS [None]
  - ARTERIOSCLEROSIS [None]
  - CHEST PAIN [None]
  - CORONARY ARTERY DISEASE [None]
  - DIZZINESS [None]
  - DYSPNOEA [None]
  - HYPERALDOSTERONISM [None]
  - ISCHAEMIA [None]
  - MYOCARDIAL INFARCTION [None]
  - PAIN [None]
  - PALPITATIONS [None]
